FAERS Safety Report 4346478-3 (Version None)
Quarter: 2004Q2

REPORT INFORMATION
  Report Type: 
  Country: None (occurrence: None)
  Receive Date: 20040426
  Receipt Date: 20030619
  Transmission Date: 20050107
  Serious: No
  Sender: FDA-Public Use
  Company Number: US-BRISTOL-MYERS SQUIBB COMPANY-12307500

PATIENT
  Age: 61 Year
  Sex: Female

DRUGS (4)
  1. CARBOPLATIN [Suspect]
     Indication: BREAST CANCER
  2. ANZEMET [Concomitant]
  3. CYTOXAN [Concomitant]
  4. ADRIAMYCIN [Concomitant]

REACTIONS (1)
  - TOOTH DISORDER [None]
